FAERS Safety Report 13566288 (Version 1)
Quarter: 2017Q2

REPORT INFORMATION
  Report Type: Spontaneous
  Country: US (occurrence: US)
  Receive Date: 20170521
  Receipt Date: 20170521
  Transmission Date: 20170830
  Serious: No
  Sender: FDA-Public Use
  Company Number: US-PFM-2017-01367

PATIENT
  Age: 31 Year

DRUGS (2)
  1. HEMANGEOL [Suspect]
     Active Substance: PROPRANOLOL HYDROCHLORIDE
     Indication: ACCIDENTAL EXPOSURE TO PRODUCT
  2. HEMANGEOL [Suspect]
     Active Substance: PROPRANOLOL HYDROCHLORIDE
     Indication: INFANTILE HAEMANGIOMA
     Dosage: UNK
     Route: 048
     Dates: start: 201702, end: 201702

REACTIONS (3)
  - Urticaria [Recovered/Resolved]
  - Accidental exposure to product [Unknown]
  - Peripheral swelling [Recovered/Resolved]
